FAERS Safety Report 17300192 (Version 1)
Quarter: 2020Q1

REPORT INFORMATION
  Report Type: Spontaneous
  Country: US (occurrence: US)
  Receive Date: 20200103
  Receipt Date: 20200103
  Transmission Date: 20200409
  Serious: No
  Sender: FDA-Public Use
  Company Number: None

PATIENT
  Age: 11 Year
  Sex: Female

DRUGS (13)
  1. ALBUTEROL HFA [Concomitant]
     Active Substance: ALBUTEROL SULFATE
  2. TRIKAFTA [Suspect]
     Active Substance: ELEXACAFTOR\IVACAFTOR\TEZACAFTOR
     Indication: CYSTIC FIBROSIS
     Dosage: ?          OTHER DOSE:2 TABS (100-50-75 1 TAB (150MG);OTHER FREQUENCY:IN AM IN PM;?
     Route: 048
  3. PHYTONADIONE. [Concomitant]
     Active Substance: PHYTONADIONE
  4. RANITIDINE. [Concomitant]
     Active Substance: RANITIDINE
  5. SOD CHL 10% [Concomitant]
  6. LORATADINE. [Concomitant]
     Active Substance: LORATADINE
  7. CAYSTON [Concomitant]
     Active Substance: AZTREONAM
  8. DEKAS PLUS [Concomitant]
  9. SYMBICORT [Concomitant]
     Active Substance: BUDESONIDE\FORMOTEROL FUMARATE DIHYDRATE
  10. CREON [Concomitant]
     Active Substance: PANCRELIPASE AMYLASE\PANCRELIPASE LIPASE\PANCRELIPASE PROTEASE
  11. CULTURELLE DIG HLTH [Concomitant]
  12. VENTOLIN HFA [Concomitant]
     Active Substance: ALBUTEROL SULFATE
  13. VITAMIN D3 [Concomitant]
     Active Substance: CHOLECALCIFEROL

REACTIONS (1)
  - Off label use [None]

NARRATIVE: CASE EVENT DATE: 20200103
